FAERS Safety Report 19288143 (Version 1)
Quarter: 2021Q2

REPORT INFORMATION
  Report Type: Spontaneous
  Country: FR (occurrence: FR)
  Receive Date: 20210521
  Receipt Date: 20210521
  Transmission Date: 20210717
  Serious: Yes (Death)
  Sender: FDA-Public Use
  Company Number: FR-TEVA-2021-FR-1912662

PATIENT
  Age: 89 Year
  Sex: Male

DRUGS (10)
  1. BRINTELLIX [Suspect]
     Active Substance: VORTIOXETINE HYDROBROMIDE
     Indication: DEPRESSION
     Dosage: UNIT DOSE : 1 DF , THERAPY START DATE : ASKU
     Route: 048
     Dates: end: 20210419
  2. MACROGOL [Suspect]
     Active Substance: POLYETHYLENE GLYCOLS
     Indication: CONSTIPATION
     Dosage: UNIT DOSE : 2 DF , THERAPY START DATE : ASKU
     Route: 048
     Dates: end: 20210419
  3. IBRUTINIB [Suspect]
     Active Substance: IBRUTINIB
     Indication: MANTLE CELL LYMPHOMA
     Dosage: UNKNOWN
     Route: 048
     Dates: start: 202102, end: 20210419
  4. HAVLANE [Suspect]
     Active Substance: LOPRAZOLAM
     Indication: INSOMNIA
     Dosage: UNIT DOSE : 1 DF , THERAPY START DATE : ASKU
     Route: 048
     Dates: end: 20210419
  5. RETACRIT [Suspect]
     Active Substance: EPOETIN ALFA-EPBX
     Indication: ANAEMIA
     Dosage: UNIT DOSE : 1 DF
     Route: 058
     Dates: start: 202102, end: 20210419
  6. XATRAL [Suspect]
     Active Substance: ALFUZOSIN
     Indication: BENIGN PROSTATIC HYPERPLASIA
     Dosage: UNIT DOSE : 1 DF , THERAPY START DATE : ASKU
     Route: 048
     Dates: end: 20210419
  7. LANSOPRAZOLE. [Suspect]
     Active Substance: LANSOPRAZOLE
     Indication: GASTRIC ULCER
     Dosage: UNIT DOSE : 1 DF , THERAPY START DATE : ASKU
     Route: 048
     Dates: end: 20210419
  8. SERESTA [Suspect]
     Active Substance: OXAZEPAM
     Indication: ANXIETY
     Dosage: UNIT DOSE : 3 DF , THERAPY START DATE : ASKU
     Route: 048
     Dates: end: 20210419
  9. MONOPROST [Suspect]
     Active Substance: LATANOPROST
     Indication: OPEN ANGLE GLAUCOMA
     Dosage: UNIT DOSE : 1 DF , THERAPY START DATE : ASKU
     Route: 047
     Dates: end: 20210419
  10. PROSCAR [Suspect]
     Active Substance: FINASTERIDE
     Indication: BENIGN PROSTATIC HYPERPLASIA
     Dosage: UNIT DOSE : 1 DF , THERAPY START DATE : ASKU
     Route: 048
     Dates: end: 20210419

REACTIONS (1)
  - Cerebral haemorrhage [Fatal]

NARRATIVE: CASE EVENT DATE: 20210419
